FAERS Safety Report 8223559-5 (Version None)
Quarter: 2012Q1

REPORT INFORMATION
  Report Type: 
  Country: None (occurrence: None)
  Receive Date: 20120321
  Receipt Date: 20120315
  Transmission Date: 20120608
  Serious: No
  Sender: FDA-Public Use
  Company Number: US-PFIZER INC-2012065012

PATIENT
  Sex: Male
  Weight: 10.431 kg

DRUGS (3)
  1. PEDIATRIC ADVIL [Suspect]
     Indication: COUGH
  2. PEDIATRIC ADVIL [Suspect]
     Indication: RHINORRHOEA
  3. PEDIATRIC ADVIL [Suspect]
     Indication: PYREXIA
     Dosage: 1.25ML ONCE
     Route: 048
     Dates: start: 20120311

REACTIONS (2)
  - MALAISE [None]
  - PYREXIA [None]
